FAERS Safety Report 23514989 (Version 1)
Quarter: 2024Q1

REPORT INFORMATION
  Report Type: Spontaneous
  Country: CA (occurrence: CA)
  Receive Date: 20240212
  Receipt Date: 20240212
  Transmission Date: 20240410
  Serious: Yes (Hospitalization)
  Sender: FDA-Public Use
  Company Number: CA-HLS-202400360

PATIENT
  Sex: Female

DRUGS (27)
  1. ARIPIPRAZOLE [Suspect]
     Active Substance: ARIPIPRAZOLE
     Indication: Eating disorder
     Dosage: AMOUNT: 400 MILLIGRAM?NOT SPECIFIED DOSAGE FORM
     Route: 065
  2. ARIPIPRAZOLE [Suspect]
     Active Substance: ARIPIPRAZOLE
     Indication: Personality disorder
     Dosage: AMOUNT: 400 MILLIGRAM?NOT SPECIFIED DOSAGE FORM
     Route: 065
  3. ARIPIPRAZOLE [Suspect]
     Active Substance: ARIPIPRAZOLE
     Indication: Schizophrenia
     Dosage: AMOUNT: 400 MILLIGRAM?NOT SPECIFIED DOSAGE FORM
     Route: 065
  4. ARIPIPRAZOLE [Suspect]
     Active Substance: ARIPIPRAZOLE
     Indication: Eating disorder
     Route: 065
  5. ARIPIPRAZOLE [Suspect]
     Active Substance: ARIPIPRAZOLE
     Indication: Personality disorder
     Route: 065
  6. ARIPIPRAZOLE [Suspect]
     Active Substance: ARIPIPRAZOLE
     Indication: Schizophrenia
     Route: 065
  7. CLOZAPINE [Suspect]
     Active Substance: CLOZAPINE
     Indication: Eating disorder
     Dosage: 1 EVERY 1 DAYS?AMOUNT: 225 MILLIGRAM?TABLETS DOSAGE FORM
     Route: 065
  8. CLOZAPINE [Suspect]
     Active Substance: CLOZAPINE
     Indication: Personality disorder
     Dosage: 1 EVERY 1 DAYS?AMOUNT: 225 MILLIGRAM?TABLETS DOSAGE FORM
     Route: 065
  9. CLOZAPINE [Suspect]
     Active Substance: CLOZAPINE
     Indication: Schizophrenia
     Dosage: 1 EVERY 1 DAYS?AMOUNT: 225 MILLIGRAM?TABLETS DOSAGE FORM
     Route: 065
  10. CLOZAPINE [Suspect]
     Active Substance: CLOZAPINE
     Indication: Eating disorder
     Route: 065
  11. CLOZAPINE [Suspect]
     Active Substance: CLOZAPINE
     Indication: Personality disorder
     Route: 065
  12. CLOZAPINE [Suspect]
     Active Substance: CLOZAPINE
     Indication: Schizophrenia
     Route: 065
  13. OLANZAPINE [Suspect]
     Active Substance: OLANZAPINE
     Indication: Eating disorder
     Dosage: AMOUNT: 20 MILLIGRAM
     Route: 048
  14. OLANZAPINE [Suspect]
     Active Substance: OLANZAPINE
     Indication: Personality disorder
     Dosage: AMOUNT: 20 MILLIGRAM
     Route: 048
  15. OLANZAPINE [Suspect]
     Active Substance: OLANZAPINE
     Indication: Schizophrenia
     Dosage: AMOUNT: 20 MILLIGRAM
     Route: 048
  16. OLANZAPINE [Suspect]
     Active Substance: OLANZAPINE
     Indication: Eating disorder
     Dosage: 1 EVERY 1 DAYS?AMOUNT: 10 MILLIGRAM?NOT SPECIFIED DOSAGE FORM
     Route: 048
  17. OLANZAPINE [Suspect]
     Active Substance: OLANZAPINE
     Indication: Personality disorder
     Dosage: 1 EVERY 1 DAYS?AMOUNT: 10 MILLIGRAM?NOT SPECIFIED DOSAGE FORM
     Route: 048
  18. OLANZAPINE [Suspect]
     Active Substance: OLANZAPINE
     Indication: Schizophrenia
     Dosage: 1 EVERY 1 DAYS?AMOUNT: 10 MILLIGRAM?NOT SPECIFIED DOSAGE FORM
     Route: 048
  19. PALIPERIDONE [Suspect]
     Active Substance: PALIPERIDONE
     Indication: Eating disorder
     Dosage: AMOUNT: 150 MILLIGRAM
     Route: 065
  20. PALIPERIDONE [Suspect]
     Active Substance: PALIPERIDONE
     Indication: Personality disorder
     Dosage: AMOUNT: 150 MILLIGRAM
     Route: 065
  21. PALIPERIDONE [Suspect]
     Active Substance: PALIPERIDONE
     Indication: Schizophrenia
     Dosage: AMOUNT: 150 MILLIGRAM
     Route: 065
  22. ZUCLOPENTHIXOL [Suspect]
     Active Substance: ZUCLOPENTHIXOL
     Indication: Eating disorder
     Dosage: AMOUNT: 75 MILLIGRAM
     Route: 065
  23. ZUCLOPENTHIXOL [Suspect]
     Active Substance: ZUCLOPENTHIXOL
     Indication: Personality disorder
     Dosage: AMOUNT: 75 MILLIGRAM
     Route: 065
  24. ZUCLOPENTHIXOL [Suspect]
     Active Substance: ZUCLOPENTHIXOL
     Indication: Schizophrenia
     Dosage: AMOUNT: 75 MILLIGRAM
     Route: 065
  25. ZUCLOPENTHIXOL [Suspect]
     Active Substance: ZUCLOPENTHIXOL
     Indication: Eating disorder
     Dosage: INJECTION DOSAGE FORM
     Route: 065
  26. ZUCLOPENTHIXOL [Suspect]
     Active Substance: ZUCLOPENTHIXOL
     Indication: Personality disorder
     Dosage: INJECTION DOSAGE FORM
     Route: 065
  27. ZUCLOPENTHIXOL [Suspect]
     Active Substance: ZUCLOPENTHIXOL
     Indication: Schizophrenia
     Dosage: INJECTION DOSAGE FORM
     Route: 065

REACTIONS (2)
  - Drug ineffective [Unknown]
  - Drug ineffective for unapproved indication [Unknown]
